FAERS Safety Report 4451986-0 (Version None)
Quarter: 2004Q3

REPORT INFORMATION
  Report Type: 
  Country: None (occurrence: None)
  Receive Date: 20040916
  Receipt Date: 20040902
  Transmission Date: 20050211
  Serious: Yes (Hospitalization, Other)
  Sender: FDA-Public Use
  Company Number: C2003-1753.01

PATIENT
  Age: 63 Year
  Sex: Female
  Weight: 65.7716 kg

DRUGS (2)
  1. PROPRANOLOL HYDROCHLORIDE TABLETS 40 MG MYLAN [Suspect]
     Indication: HYPERTENSION
     Dosage: 40MG BID, ORAL
     Route: 048
     Dates: start: 20030112, end: 20030517
  2. PROPRANOLOL HYDROCHLORIDE TABLETS 40 MG MYLAN [Suspect]
     Indication: MITRAL VALVE PROLAPSE
     Dosage: 40MG BID, ORAL
     Route: 048
     Dates: start: 20030112, end: 20030517

REACTIONS (5)
  - ARRHYTHMIA [None]
  - ASTHENIA [None]
  - CHEST PAIN [None]
  - DYSPNOEA [None]
  - NAUSEA [None]
